FAERS Safety Report 8529767-8 (Version None)
Quarter: 2012Q3

REPORT INFORMATION
  Report Type: 
  Country: None (occurrence: None)
  Receive Date: 20120723
  Receipt Date: 20120716
  Transmission Date: 20120928
  Serious: Yes (Life-Threatening)
  Sender: FDA-Public Use
  Company Number: FR-JNJFOC-20110103319

PATIENT
  Sex: Male

DRUGS (13)
  1. IMOVANE [Concomitant]
     Route: 065
  2. TERCIAN [Suspect]
     Indication: PERSECUTORY DELUSION
     Route: 048
     Dates: start: 20100709, end: 20101202
  3. RISPERDAL [Suspect]
     Route: 048
     Dates: start: 20101202, end: 20101208
  4. RISPERDAL [Suspect]
     Route: 048
     Dates: start: 20101123
  5. RISPERDAL [Suspect]
     Route: 048
  6. RISPERDAL CONSTA [Suspect]
     Indication: PERSECUTORY DELUSION
     Route: 030
     Dates: start: 20101203, end: 20101203
  7. ZYPREXA [Suspect]
     Indication: PERSECUTORY DELUSION
     Route: 048
     Dates: start: 20100709, end: 20101123
  8. LOXAPINE HCL [Suspect]
     Indication: PERSECUTORY DELUSION
     Route: 048
     Dates: start: 20101202, end: 20101208
  9. RISPERDAL [Suspect]
     Indication: PERSECUTORY DELUSION
     Route: 048
     Dates: start: 20101216
  10. LEPTICUR [Concomitant]
     Indication: EXTRAPYRAMIDAL DISORDER
     Route: 048
     Dates: start: 20101202, end: 20101208
  11. LEPTICUR [Concomitant]
     Route: 048
     Dates: start: 20101123
  12. POLYETHYLENE GLYCOL [Concomitant]
     Route: 065
  13. ESCITALOPRAM [Concomitant]
     Indication: DEPRESSION
     Route: 048
     Dates: start: 20101206, end: 20101208

REACTIONS (2)
  - ISCHAEMIC STROKE [None]
  - PSYCHIATRIC DECOMPENSATION [None]
